FAERS Safety Report 13844026 (Version 1)
Quarter: 2017Q3

REPORT INFORMATION
  Report Type: Spontaneous
  Country: IN (occurrence: IN)
  Receive Date: 20170808
  Receipt Date: 20170808
  Transmission Date: 20171127
  Serious: Yes (Life-Threatening, Hospitalization, Other)
  Sender: FDA-Public Use
  Company Number: IN-SUN PHARMACEUTICAL INDUSTRIES LTD-2017R1-147203

PATIENT
  Age: 45 Year
  Sex: Female

DRUGS (5)
  1. PROPOFOL. [Suspect]
     Active Substance: PROPOFOL
     Indication: GENERAL ANAESTHESIA
     Dosage: UNK
     Route: 065
  2. ISOFLURANE. [Concomitant]
     Active Substance: ISOFLURANE
     Indication: PRODUCT USED FOR UNKNOWN INDICATION
     Route: 065
  3. VECURONIUM [Suspect]
     Active Substance: VECURONIUM BROMIDE
     Indication: GENERAL ANAESTHESIA
     Route: 065
  4. FENTANYL. [Concomitant]
     Active Substance: FENTANYL
     Indication: GENERAL ANAESTHESIA
     Route: 065
  5. OXYGEN. [Concomitant]
     Active Substance: OXYGEN
     Indication: PRODUCT USED FOR UNKNOWN INDICATION
     Route: 065

REACTIONS (6)
  - Oxygen saturation decreased [Recovered/Resolved]
  - Blood pressure increased [Recovered/Resolved]
  - Medication error [Unknown]
  - Unresponsive to stimuli [Recovered/Resolved]
  - Ventricular extrasystoles [Recovered/Resolved]
  - Respiratory rate decreased [Recovered/Resolved]
